FAERS Safety Report 9028189 (Version 1)
Quarter: 2013Q1

REPORT INFORMATION
  Report Type: Spontaneous
  Country: US (occurrence: None)
  Receive Date: 20130115
  Receipt Date: 20130115
  Transmission Date: 20140127
  Serious: No
  Sender: FDA-Public Use
  Company Number: None

PATIENT
  Age: 69 Year
  Sex: Male
  Weight: 83.92 kg

DRUGS (1)
  1. KETOROLAC TROMETHAMINE [Suspect]
     Dosage: ONE DROP 4/DAILY OPHTHALMIC?ONE DROP ONLY
     Route: 047
     Dates: start: 20130113, end: 20130113

REACTIONS (3)
  - Eye pain [None]
  - Ocular hyperaemia [None]
  - Lacrimation increased [None]
